FAERS Safety Report 5521100-9 (Version None)
Quarter: 2007Q4

REPORT INFORMATION
  Report Type: 
  Country: None (occurrence: None)
  Receive Date: 20071119
  Receipt Date: 20071109
  Transmission Date: 20080405
  Serious: Yes (Other)
  Sender: FDA-Public Use
  Company Number: CA-JNJFOC-20070901285

PATIENT
  Sex: Female

DRUGS (5)
  1. REMICADE [Suspect]
     Route: 042
  2. REMICADE [Suspect]
     Indication: CROHN'S DISEASE
     Route: 042
  3. ACCOLATE [Concomitant]
     Indication: PREMEDICATION
     Route: 048
  4. HYDROXYZINE [Concomitant]
     Indication: PREMEDICATION
     Route: 048
  5. PREDNISONE TAB [Concomitant]
     Indication: PREMEDICATION
     Route: 048

REACTIONS (1)
  - FLUID RETENTION [None]
